FAERS Safety Report 24042410 (Version 1)
Quarter: 2024Q3

REPORT INFORMATION
  Report Type: Report from Study
  Country: AT (occurrence: AT)
  Receive Date: 20240702
  Receipt Date: 20240702
  Transmission Date: 20241017
  Serious: Yes (Other)
  Sender: ABBVIE
  Company Number: AT-ABBVIE-5817608

PATIENT
  Age: 27 Year
  Sex: Male

DRUGS (1)
  1. HUMIRA [Suspect]
     Active Substance: ADALIMUMAB
     Indication: Crohn^s disease
     Route: 058
     Dates: start: 20221222

REACTIONS (7)
  - Lung hyperinflation [Not Recovered/Not Resolved]
  - Seasonal allergy [Recovered/Resolved]
  - Bronchial wall thickening [Not Recovered/Not Resolved]
  - Contusion [Recovered/Resolved]
  - Coronavirus infection [Recovered/Resolved]
  - Mite allergy [Recovered/Resolved]
  - Food allergy [Recovered/Resolved]

NARRATIVE: CASE EVENT DATE: 20240601
